FAERS Safety Report 5853334-8 (Version None)
Quarter: 2008Q3

REPORT INFORMATION
  Report Type: 
  Country: None (occurrence: None)
  Receive Date: 20080821
  Receipt Date: 20080812
  Transmission Date: 20090109
  Serious: Yes (Hospitalization)
  Sender: FDA-Public Use
  Company Number: FR-PFIZER INC-2008067246

PATIENT
  Sex: Female

DRUGS (5)
  1. XANAX [Suspect]
     Indication: DEPRESSION
     Route: 048
  2. NEBIVOLOL HCL [Suspect]
     Route: 048
  3. NEFOPAM [Suspect]
     Route: 058
  4. ZYPREXA [Suspect]
     Route: 048
  5. FORLAX [Concomitant]

REACTIONS (2)
  - FALL [None]
  - RHABDOMYOLYSIS [None]
